FAERS Safety Report 5035195-2 (Version None)
Quarter: 2006Q2

REPORT INFORMATION
  Report Type: 
  Country: None (occurrence: None)
  Receive Date: 20060622
  Receipt Date: 20060606
  Transmission Date: 20061013
  Serious: Yes (Hospitalization)
  Sender: FDA-Public Use
  Company Number: DE200606003991

PATIENT
  Age: 75 Year
  Sex: Female
  Weight: 63 kg

DRUGS (2)
  1. DULOXETINE HYDROCHLORID (DULOXETINE HYDROCHLORID) CAPSULE [Suspect]
     Dosage: ORAL
     Route: 048
  2. OXYBUTYNIN (OXYBUTYNIN) [Suspect]
     Indication: URINARY INCONTINENCE
     Dosage: 5 MG, DAILY (1/D), ORAL
     Route: 048
     Dates: start: 20060601

REACTIONS (1)
  - METASTASES TO OVARY [None]
